FAERS Safety Report 17722294 (Version 3)
Quarter: 2020Q2

REPORT INFORMATION
  Report Type: Report from Study
  Country: US (occurrence: US)
  Receive Date: 20200429
  Receipt Date: 20200618
  Transmission Date: 20200714
  Serious: Yes (Hospitalization, Other)
  Sender: FDA-Public Use
  Company Number: US-ASTELLAS-2019US037128

PATIENT
  Age: 69 Year
  Sex: Male

DRUGS (1)
  1. ENZALUTAMIDE [Suspect]
     Active Substance: ENZALUTAMIDE
     Indication: PROSTATE CANCER
     Route: 048
     Dates: start: 20190110

REACTIONS (7)
  - Hot flush [Unknown]
  - Oncologic complication [Unknown]
  - Fatigue [Unknown]
  - Renal disorder [Unknown]
  - Diarrhoea [Unknown]
  - Renal cancer [Unknown]
  - Device related infection [Unknown]

NARRATIVE: CASE EVENT DATE: 202004
